FAERS Safety Report 7106291-0 (Version None)
Quarter: 2010Q4

REPORT INFORMATION
  Report Type: 
  Country: None (occurrence: None)
  Receive Date: 20101116
  Receipt Date: 20101108
  Transmission Date: 20110411
  Serious: Yes (Disabling)
  Sender: FDA-Public Use
  Company Number: GB-TEVA-254189ISR

PATIENT
  Sex: Male
  Weight: 88.9 kg

DRUGS (8)
  1. AMLODIPINE [Suspect]
     Indication: HYPERTENSION
     Route: 048
  2. IRBESARTAN [Concomitant]
     Indication: HYPERTENSION
     Route: 048
  3. GAVISCON [Concomitant]
     Route: 048
  4. LEVOTHYROXINE SODIUM [Concomitant]
     Indication: HYPOTHYROIDISM
     Route: 048
  5. OMEPRAZOLE [Concomitant]
     Indication: OESOPHAGITIS
     Route: 048
  6. OMEPRAZOLE [Concomitant]
     Indication: ACID BASE BALANCE
  7. QUININE SULFATE [Concomitant]
     Indication: MUSCLE SPASMS
     Route: 048
  8. TAMSULOSIN [Concomitant]
     Route: 048

REACTIONS (1)
  - URGE INCONTINENCE [None]
